FAERS Safety Report 16259876 (Version 3)
Quarter: 2019Q3

REPORT INFORMATION
  Report Type: Spontaneous
  Country: JP (occurrence: JP)
  Receive Date: 20190501
  Receipt Date: 20190913
  Transmission Date: 20191004
  Serious: Yes (Death, Hospitalization)
  Sender: FDA-Public Use
  Company Number: JP-ELI_LILLY_AND_COMPANY-JP201904014394

PATIENT
  Sex: Male
  Weight: 46.5 kg

DRUGS (3)
  1. LOXOMARIN [Concomitant]
     Active Substance: LOXOPROFEN
     Indication: CANCER PAIN
     Dosage: UNK
     Dates: start: 201504
  2. CYRAMZA [Suspect]
     Active Substance: RAMUCIRUMAB
     Indication: COLON CANCER
     Dosage: 400 MG, CYCLICAL
     Route: 041
     Dates: start: 20181112, end: 20190403
  3. NEXIUM [Concomitant]
     Active Substance: ESOMEPRAZOLE MAGNESIUM
     Dosage: 20 MG

REACTIONS (2)
  - Tumour haemorrhage [Fatal]
  - Ileal perforation [Not Recovered/Not Resolved]

NARRATIVE: CASE EVENT DATE: 20190405
